FAERS Safety Report 4979300-2 (Version None)
Quarter: 2006Q2

REPORT INFORMATION
  Report Type: 
  Country: None (occurrence: None)
  Receive Date: 20060421
  Receipt Date: 20051004
  Transmission Date: 20061013
  Serious: Yes (Hospitalization, Disabling)
  Sender: FDA-Public Use
  Company Number: US-MERCK-0510USA03782

PATIENT
  Age: 61 Year
  Sex: Female
  Weight: 70 kg

DRUGS (4)
  1. VIOXX [Suspect]
     Indication: BACK PAIN
     Route: 048
     Dates: start: 20020625, end: 20050217
  2. TOPROL-XL [Concomitant]
     Route: 065
  3. LORTAB [Concomitant]
     Route: 065
  4. SOMA [Concomitant]
     Route: 065

REACTIONS (9)
  - ANAEMIA [None]
  - ANXIETY [None]
  - CARDIOVASCULAR DISORDER [None]
  - CORONARY ARTERY STENOSIS [None]
  - FEMORAL NERVE INJURY [None]
  - HAEMATOMA [None]
  - MYOCARDIAL INFARCTION [None]
  - THROMBOSIS [None]
  - VASCULAR PSEUDOANEURYSM [None]
